FAERS Safety Report 20741306 (Version 1)
Quarter: 2022Q2

REPORT INFORMATION
  Report Type: Spontaneous
  Country: US (occurrence: US)
  Receive Date: 20220422
  Receipt Date: 20220422
  Transmission Date: 20220720
  Serious: No
  Sender: FDA-Public Use
  Company Number: US-PFIZER INC-202101105932

PATIENT
  Age: 75 Year
  Sex: Female
  Weight: 59.87 kg

DRUGS (2)
  1. CHANTIX [Suspect]
     Active Substance: VARENICLINE TARTRATE
     Dosage: UNK
     Dates: start: 202106, end: 202106
  2. PRASUGREL [Concomitant]
     Active Substance: PRASUGREL
     Indication: Cardiac disorder
     Dosage: UNK
     Dates: start: 202105

REACTIONS (1)
  - Malaise [Recovered/Resolved]

NARRATIVE: CASE EVENT DATE: 20210601
